FAERS Safety Report 8322517 (Version 4)
Quarter: 2013Q3

REPORT INFORMATION
  Report Type: Report from Study
  Country: US (occurrence: US)
  Receive Date: 20120105
  Receipt Date: 20130906
  Transmission Date: 20140515
  Serious: Yes (Other)
  Sender: FDA-Public Use
  Company Number: US-ELI_LILLY_AND_COMPANY-US201108001120

PATIENT
  Age: 89 Year
  Sex: Female

DRUGS (20)
  1. TERIPARATIDE [Suspect]
     Indication: OSTEOPOROSIS
     Dosage: 20 UG, QD
     Dates: start: 20110726
  2. TERIPARATIDE [Suspect]
     Dosage: 20 UG, QD
  3. TERIPARATIDE [Suspect]
     Dosage: 20 UG, QD
  4. TERIPARATIDE [Suspect]
     Dosage: 20 UG, QD
  5. TERIPARATIDE [Suspect]
     Dosage: 20 UG, QD
  6. TERIPARATIDE [Suspect]
     Dosage: 20 UG, QD
     Dates: end: 20130726
  7. LANOXIN [Concomitant]
  8. FUROSEMIDE [Concomitant]
  9. PEPCID [Concomitant]
     Dosage: UNK, QD
  10. ADVAIR [Concomitant]
     Indication: ASTHMA
     Dosage: UNK, BID
  11. ALBUTEROL [Concomitant]
     Dosage: UNK, PRN
  12. VITAMINS NOS [Concomitant]
     Dosage: UNK, QD
  13. VITAMIN D3 [Concomitant]
     Dosage: UNK, QD
  14. VITAMIN B12 [Concomitant]
     Dosage: UNK, QD
  15. OCUVITE                            /01053801/ [Concomitant]
     Dosage: UNK, QD
  16. PATANOL [Concomitant]
     Indication: EYE PRURITUS
     Dosage: UNK, PRN
  17. NITRO                              /00003201/ [Concomitant]
     Dosage: UNK, PRN
  18. Z-BEC                              /02374701/ [Concomitant]
     Dosage: UNK, QD
  19. TUMS                               /00193601/ [Concomitant]
     Dosage: UNK, BID
  20. DIGOXIN [Concomitant]

REACTIONS (62)
  - Muscle spasms [Recovered/Resolved]
  - Nausea [Unknown]
  - Muscle spasms [Unknown]
  - Cardiac failure congestive [Unknown]
  - Irritable bowel syndrome [Not Recovered/Not Resolved]
  - Oedema peripheral [Not Recovered/Not Resolved]
  - Micturition urgency [Not Recovered/Not Resolved]
  - Urine flow decreased [Not Recovered/Not Resolved]
  - Rectocele [Unknown]
  - Enterocele [Unknown]
  - Cystocele [Unknown]
  - Oesophageal disorder [Not Recovered/Not Resolved]
  - Feeling abnormal [Not Recovered/Not Resolved]
  - Erythema [Unknown]
  - Nervousness [Unknown]
  - Rectal prolapse [Unknown]
  - Fractured coccyx [Unknown]
  - Dysphagia [Unknown]
  - Limb injury [Unknown]
  - Contusion [Recovering/Resolving]
  - Pain in extremity [Not Recovered/Not Resolved]
  - Rhinorrhoea [Unknown]
  - Fall [Recovered/Resolved]
  - Balance disorder [Not Recovered/Not Resolved]
  - Peripheral vascular disorder [Unknown]
  - Blood blister [Unknown]
  - Heart rate increased [Unknown]
  - Asthma [Unknown]
  - Fatigue [Not Recovered/Not Resolved]
  - Food intolerance [Not Recovered/Not Resolved]
  - Pruritus [Recovered/Resolved]
  - Dry skin [Unknown]
  - Sleep disorder [Unknown]
  - Blister [Unknown]
  - Malaise [Unknown]
  - Carpal tunnel syndrome [Unknown]
  - Increased upper airway secretion [Recovering/Resolving]
  - Drug dose omission [Unknown]
  - Injection site erythema [Unknown]
  - Headache [Unknown]
  - Scoliosis [Unknown]
  - Local swelling [Unknown]
  - Ulcer [Unknown]
  - Feeling cold [Unknown]
  - Sleep disorder [Unknown]
  - Dizziness [Not Recovered/Not Resolved]
  - Pain [Not Recovered/Not Resolved]
  - Neck pain [Unknown]
  - Dyspnoea [Unknown]
  - Diarrhoea [Unknown]
  - Injection site pain [Unknown]
  - Injection site swelling [Unknown]
  - Malaise [Unknown]
  - Asthenia [Unknown]
  - Dermatitis [Unknown]
  - Dysphagia [Not Recovered/Not Resolved]
  - Constipation [Unknown]
  - Dizziness [Unknown]
  - Dyspnoea [Unknown]
  - Asthenia [Unknown]
  - Vein disorder [Unknown]
  - Pain in extremity [Unknown]
